FAERS Safety Report 19490276 (Version 3)
Quarter: 2022Q1

REPORT INFORMATION
  Report Type: Report from Study
  Country: CA (occurrence: CA)
  Receive Date: 20210705
  Receipt Date: 20220302
  Transmission Date: 20220423
  Serious: Yes (Other)
  Sender: FDA-Public Use
  Company Number: CA-JNJFOC-20210624600

PATIENT
  Age: 51 Year
  Sex: Female
  Weight: 105 kg

DRUGS (6)
  1. STELARA [Suspect]
     Active Substance: USTEKINUMAB
     Indication: Crohn^s disease
     Route: 058
     Dates: start: 20181205
  2. STELARA [Suspect]
     Active Substance: USTEKINUMAB
  3. METRONIDAZOLE [Suspect]
     Active Substance: METRONIDAZOLE
     Indication: Fistula
     Route: 065
     Dates: start: 20210610, end: 20210623
  4. METRONIDAZOLE [Suspect]
     Active Substance: METRONIDAZOLE
     Indication: Abscess
  5. CIPROFLOXACIN [Suspect]
     Active Substance: CIPROFLOXACIN
     Indication: Fistula
     Route: 065
     Dates: start: 20210610, end: 20210623
  6. CIPROFLOXACIN [Suspect]
     Active Substance: CIPROFLOXACIN
     Indication: Abscess

REACTIONS (12)
  - Haematochezia [Recovered/Resolved]
  - Rectal abscess [Recovering/Resolving]
  - Pulmonary mass [Not Recovered/Not Resolved]
  - Anal fistula [Recovering/Resolving]
  - Coccydynia [Recovered/Resolved]
  - Pain [Not Recovered/Not Resolved]
  - Musculoskeletal pain [Not Recovered/Not Resolved]
  - Plantar fascial fibromatosis [Not Recovered/Not Resolved]
  - Secretion discharge [Recovered/Resolved]
  - Pain in extremity [Not Recovered/Not Resolved]
  - Constipation [Recovered/Resolved]
  - Injection site reaction [Recovered/Resolved]

NARRATIVE: CASE EVENT DATE: 20210501
